FAERS Safety Report 8471567-1 (Version None)
Quarter: 2012Q2

REPORT INFORMATION
  Report Type: 
  Country: None (occurrence: None)
  Receive Date: 20120627
  Receipt Date: 20120620
  Transmission Date: 20120825
  Serious: Yes (Other)
  Sender: FDA-Public Use
  Company Number: US-JNJFOC-20120611301

PATIENT
  Age: 80 Year
  Sex: Male

DRUGS (2)
  1. MULTIPLE MEDICATIONS [Concomitant]
  2. XARELTO [Suspect]
     Indication: ATRIAL FIBRILLATION
     Route: 048
     Dates: end: 20120601

REACTIONS (2)
  - DYSPEPSIA [None]
  - WEIGHT DECREASED [None]
